FAERS Safety Report 19700186 (Version 19)
Quarter: 2025Q2

REPORT INFORMATION
  Report Type: Report from Study
  Country: CO (occurrence: CO)
  Receive Date: 20210813
  Receipt Date: 20250428
  Transmission Date: 20250716
  Serious: Yes (Other)
  Sender: TAKEDA
  Company Number: CO-TAKEDA-2021TUS014383

PATIENT
  Age: 29 Year
  Sex: Female
  Weight: 73 kg

DRUGS (4)
  1. VEDOLIZUMAB [Suspect]
     Active Substance: VEDOLIZUMAB
     Indication: Colitis ulcerative
     Dates: start: 20210226, end: 20240626
  2. VEDOLIZUMAB [Suspect]
     Active Substance: VEDOLIZUMAB
     Indication: Crohn^s disease
  3. MESALAMINE [Suspect]
     Active Substance: MESALAMINE
     Indication: Product used for unknown indication
  4. AZATHIOPRINE [Concomitant]
     Active Substance: AZATHIOPRINE

REACTIONS (24)
  - Tuberculosis [Unknown]
  - Crohn^s disease [Unknown]
  - Haematochezia [Unknown]
  - Discouragement [Recovered/Resolved]
  - Anorectal disorder [Recovering/Resolving]
  - Dizziness [Recovered/Resolved]
  - Headache [Recovered/Resolved]
  - Nausea [Recovered/Resolved]
  - Stress [Unknown]
  - Illness [Unknown]
  - Gastrointestinal disorder [Unknown]
  - Malaise [Unknown]
  - Chills [Unknown]
  - Fatigue [Unknown]
  - Treatment noncompliance [Unknown]
  - Red blood cell count decreased [Unknown]
  - Depressed mood [Unknown]
  - Weight increased [Unknown]
  - Body height decreased [Unknown]
  - Weight decreased [Unknown]
  - Diarrhoea [Recovered/Resolved]
  - Abdominal pain [Recovered/Resolved]
  - Abdominal distension [Recovered/Resolved]
  - Arthralgia [Recovered/Resolved]

NARRATIVE: CASE EVENT DATE: 20210226
